FAERS Safety Report 9018032 (Version 2)
Quarter: 2013Q1

REPORT INFORMATION
  Report Type: Spontaneous
  Country: GB (occurrence: GB)
  Receive Date: 20130118
  Receipt Date: 20130206
  Transmission Date: 20140127
  Serious: Yes (Hospitalization, Disabling, Other)
  Sender: FDA-Public Use
  Company Number: GB-009507513-1301GBR003610

PATIENT
  Sex: 0

DRUGS (1)
  1. FOSAMAX [Suspect]
     Indication: POLYMYALGIA RHEUMATICA
     Dosage: UNK
     Route: 048
     Dates: start: 2007, end: 20111128

REACTIONS (9)
  - Femur fracture [Unknown]
  - Sciatica [Unknown]
  - Abasia [Unknown]
  - Pain [Unknown]
  - Impaired work ability [Unknown]
  - Impaired driving ability [Unknown]
  - Fear of falling [Unknown]
  - Activities of daily living impaired [Unknown]
  - Quality of life decreased [Unknown]
